FAERS Safety Report 6171876-5 (Version None)
Quarter: 2009Q2

REPORT INFORMATION
  Report Type: 
  Country: None (occurrence: None)
  Receive Date: 20090429
  Receipt Date: 20090421
  Transmission Date: 20091009
  Serious: No
  Sender: FDA-Public Use
  Company Number: US-BIOGENIDEC-2009BI010467

PATIENT
  Age: 22 Year
  Sex: Female
  Weight: 92 kg

DRUGS (2)
  1. AVONEX [Suspect]
     Indication: MULTIPLE SCLEROSIS
     Route: 030
     Dates: start: 20071001, end: 20080601
  2. AVONEX [Suspect]
     Route: 030
     Dates: start: 20090101

REACTIONS (1)
  - NO ADVERSE EVENT [None]
